FAERS Safety Report 19085870 (Version 5)
Quarter: 2022Q1

REPORT INFORMATION
  Report Type: Report from Study
  Country: US (occurrence: US)
  Receive Date: 20210402
  Receipt Date: 20220106
  Transmission Date: 20220423
  Serious: Yes (Death, Other)
  Sender: FDA-Public Use
  Company Number: US-ACADIA PHARMACEUTICALS INC.-ACA-2021-PIM-000943

PATIENT
  Age: 78 Year
  Sex: Male
  Weight: 115 kg

DRUGS (11)
  1. NUPLAZID [Suspect]
     Active Substance: PIMAVANSERIN TARTRATE
     Indication: Hallucination, auditory
     Dosage: 34 MILLIGRAM, QD
     Route: 048
     Dates: start: 20210217, end: 202104
  2. NUPLAZID [Suspect]
     Active Substance: PIMAVANSERIN TARTRATE
     Indication: Hallucination
     Dosage: 34 MILLIGRAM, QD
     Route: 048
     Dates: end: 20211108
  3. NUPLAZID [Suspect]
     Active Substance: PIMAVANSERIN TARTRATE
     Indication: Delusion
  4. NUPLAZID [Suspect]
     Active Substance: PIMAVANSERIN TARTRATE
     Indication: Parkinson^s disease psychosis
  5. LAMICTAL [Concomitant]
     Active Substance: LAMOTRIGINE
     Indication: Seizure
  6. SINEMET [Concomitant]
     Active Substance: CARBIDOPA\LEVODOPA
     Dosage: UNK
     Dates: end: 20210209
  7. METOPROLOL [Concomitant]
     Active Substance: METOPROLOL
  8. DUTASTERIDE [Concomitant]
     Active Substance: DUTASTERIDE
  9. ECOTRIN [Concomitant]
     Active Substance: ASPIRIN
  10. LISINOPRIL [Concomitant]
     Active Substance: LISINOPRIL
  11. LASIX [Concomitant]
     Active Substance: FUROSEMIDE

REACTIONS (11)
  - Death [Recovered/Resolved]
  - Emotional disorder [Unknown]
  - Delusion [Recovering/Resolving]
  - Frustration tolerance decreased [Unknown]
  - Glassy eyes [Unknown]
  - Hallucination, visual [Not Recovered/Not Resolved]
  - Aggression [Recovering/Resolving]
  - Drug ineffective [Unknown]
  - Hallucination, visual [Not Recovered/Not Resolved]
  - Hallucination, auditory [Not Recovered/Not Resolved]
  - Hallucination [Not Recovered/Not Resolved]

NARRATIVE: CASE EVENT DATE: 20210201
